FAERS Safety Report 21168142 (Version 1)
Quarter: 2022Q3

REPORT INFORMATION
  Report Type: Spontaneous
  Country: IT (occurrence: IT)
  Receive Date: 20220803
  Receipt Date: 20220803
  Transmission Date: 20221027
  Serious: Yes (Other)
  Sender: FDA-Public Use
  Company Number: None

PATIENT
  Age: 37 Year
  Sex: Male

DRUGS (1)
  1. HALCION [Suspect]
     Active Substance: TRIAZOLAM
     Indication: Insomnia
     Dosage: 250 UG

REACTIONS (7)
  - Loss of consciousness [Recovering/Resolving]
  - Disturbance in attention [Recovering/Resolving]
  - Sedation [Recovering/Resolving]
  - Dizziness [Recovering/Resolving]
  - Parosmia [Recovering/Resolving]
  - Decreased appetite [Recovering/Resolving]
  - Taste disorder [Recovering/Resolving]
